FAERS Safety Report 19990988 (Version 4)
Quarter: 2021Q4

REPORT INFORMATION
  Report Type: Report from Study
  Country: US (occurrence: US)
  Receive Date: 20211025
  Receipt Date: 20211114
  Transmission Date: 20220303
  Serious: No
  Sender: FDA-Public Use
  Company Number: NVSC2021US236892

PATIENT
  Sex: Female

DRUGS (2)
  1. ENTRESTO [Suspect]
     Active Substance: SACUBITRIL\VALSARTAN
     Indication: Cardiac failure
     Dosage: UNK UNK, QMO
     Route: 048
     Dates: start: 202107
  2. ELIQUIS [Suspect]
     Active Substance: APIXABAN
     Indication: Product used for unknown indication
     Dosage: UNK
     Route: 065

REACTIONS (6)
  - Throat clearing [Unknown]
  - Product dose omission issue [Unknown]
  - Memory impairment [Recovering/Resolving]
  - Somnolence [Unknown]
  - Ejection fraction decreased [Unknown]
  - Hypersensitivity [Unknown]
